FAERS Safety Report 7958195-9 (Version None)
Quarter: 2011Q4

REPORT INFORMATION
  Report Type: 
  Country: None (occurrence: None)
  Receive Date: 20111205
  Receipt Date: 20111129
  Transmission Date: 20120403
  Serious: Yes (Other)
  Sender: FDA-Public Use
  Company Number: FI-PFIZER INC-2011294120

PATIENT
  Sex: Male

DRUGS (2)
  1. METHOTREXATE SODIUM [Suspect]
     Indication: ANKYLOSING SPONDYLITIS
  2. SULFASALAZINE [Suspect]
     Indication: ANKYLOSING SPONDYLITIS

REACTIONS (1)
  - SPLENECTOMY [None]
